FAERS Safety Report 6978305-X (Version None)
Quarter: 2010Q3

REPORT INFORMATION
  Report Type: 
  Country: None (occurrence: None)
  Receive Date: 20100913
  Receipt Date: 20100831
  Transmission Date: 20110219
  Serious: Yes (Hospitalization)
  Sender: FDA-Public Use
  Company Number: US-ELI_LILLY_AND_COMPANY-US201009000772

PATIENT
  Sex: Male

DRUGS (4)
  1. SYMBYAX [Suspect]
     Dosage: 1 D/F, UNKNOWN
     Route: 065
     Dates: start: 20100818, end: 20100830
  2. KLONOPIN [Concomitant]
     Dosage: 1 MG, UNKNOWN
     Route: 065
  3. AMBIEN [Concomitant]
     Dosage: 10 MG, UNKNOWN
     Route: 065
  4. LAMITOL [Concomitant]
     Dosage: 200 MG, UNKNOWN
     Route: 065

REACTIONS (2)
  - CONSTIPATION [None]
  - FALL [None]
